FAERS Safety Report 9039341 (Version 1)
Quarter: 2013Q1

REPORT INFORMATION
  Report Type: Spontaneous
  Country: US (occurrence: None)
  Receive Date: 20130123
  Receipt Date: 20130123
  Transmission Date: 20140127
  Serious: Yes (Life-Threatening, Hospitalization)
  Sender: FDA-Public Use
  Company Number: None

PATIENT
  Age: 54 Year
  Sex: Female
  Weight: 70 kg

DRUGS (2)
  1. AFINITOR [Suspect]
     Dates: start: 20121101, end: 20130101
  2. METFORMIN [Suspect]
     Route: 048
     Dates: start: 20121101, end: 20130101

REACTIONS (2)
  - Fatigue [None]
  - Blood creatinine increased [None]
